FAERS Safety Report 14375708 (Version 3)
Quarter: 2018Q1

REPORT INFORMATION
  Report Type: Report from Study
  Country: JP (occurrence: JP)
  Receive Date: 20180111
  Receipt Date: 20180131
  Transmission Date: 20180509
  Serious: Yes (Life-Threatening)
  Sender: FDA-Public Use
  Company Number: JP-PFIZER INC-2018007533

PATIENT
  Age: 86 Year
  Sex: Male
  Weight: 45.5 kg

DRUGS (32)
  1. AMLODIPINE [Concomitant]
     Active Substance: AMLODIPINE BESYLATE
     Indication: CHRONIC KIDNEY DISEASE
     Dosage: 5 MG, 1 IN 1 D
     Route: 048
     Dates: start: 20170906
  2. SPIRONOLACTONE. [Concomitant]
     Active Substance: SPIRONOLACTONE
     Indication: CHRONIC KIDNEY DISEASE
     Dosage: 25 MG, 1 IN 1 D
     Route: 048
     Dates: start: 20170906
  3. FEBUXOSTAT. [Concomitant]
     Active Substance: FEBUXOSTAT
     Indication: HYPERURICAEMIA
     Dosage: 20 MG, 1 IN 1 D
     Route: 048
     Dates: start: 20170906
  4. CALONAL [Concomitant]
     Active Substance: ACETAMINOPHEN
     Indication: PAIN
     Dosage: 400 MG, AS REQUIRED
     Route: 048
     Dates: start: 20171012
  5. OTSUKA NORMAL SALINE [Concomitant]
     Indication: FEBRILE NEUTROPENIA
     Dosage: 300 MG, 3 IN 1 D
     Route: 041
     Dates: start: 20171020
  6. SOLU-CORTEF [Concomitant]
     Active Substance: HYDROCORTISONE SODIUM SUCCINATE
     Indication: HYPERSENSITIVITY
     Dosage: 300 MG, 1 IN 1 D
     Route: 042
     Dates: start: 20171104
  7. POLYMIXIN B SULFATE [Concomitant]
     Indication: PROPHYLAXIS
     Dosage: 1 DOSAGE FORMS,3 IN 1 D
     Route: 048
     Dates: start: 20170927
  8. BFLUID [Concomitant]
     Active Substance: AMINO ACIDS\DEXTROSE\ELECTROLYTES NOS\VITAMINS
     Indication: FLUID REPLACEMENT
     Dosage: 500 ML, 1 IN 1 D
     Route: 041
     Dates: start: 20170928
  9. BFLUID [Concomitant]
     Active Substance: AMINO ACIDS\DEXTROSE\ELECTROLYTES NOS\VITAMINS
     Dosage: 500 ML, 1 IN 1 D
     Route: 041
     Dates: start: 20171014
  10. ACELIO [Concomitant]
     Active Substance: ACETAMINOPHEN
     Indication: FEBRILE NEUTROPENIA
     Dosage: 1000 MG, AS REQUIRED
     Route: 041
     Dates: start: 20171120
  11. CYTARABINE. [Suspect]
     Active Substance: CYTARABINE
     Indication: ACUTE MYELOID LEUKAEMIA
     Dosage: 20 MG/M2, DAILY ON DAYS 1-10 OF EACH 28 DAY CYCLE
     Route: 058
     Dates: start: 20171012, end: 20171118
  12. BLINDED THERAPY [Suspect]
     Active Substance: INVESTIGATIONAL PRODUCT
     Dosage: 200 MG, 1 IN 1 D
     Route: 048
     Dates: start: 20171013, end: 20171013
  13. BLINDED THERAPY [Suspect]
     Active Substance: INVESTIGATIONAL PRODUCT
     Dosage: 600 MG, 1 IN 1 D
     Route: 048
     Dates: start: 20171015, end: 20171117
  14. POPIYODON [Concomitant]
     Indication: PROPHYLAXIS
     Dosage: 1000 ML, 3 IN 1 D
     Route: 048
     Dates: start: 20170927
  15. SENNA [Concomitant]
     Active Substance: SENNA LEAF\SENNOSIDES\SENNOSIDES A AND B
     Indication: CONSTIPATION
     Dosage: 0.5 MG, 1 IN 1 D
     Route: 048
     Dates: start: 20171010
  16. MEROPENEM. [Concomitant]
     Active Substance: MEROPENEM
     Indication: FEBRILE NEUTROPENIA
     Dosage: 1000 MG, 3 IN 1 D
     Route: 041
     Dates: start: 20171020
  17. MEROPENEM. [Concomitant]
     Active Substance: MEROPENEM
     Indication: PNEUMONIA
     Dosage: 1000 MG, 3 IN 1 D
     Route: 041
     Dates: start: 20171110
  18. MAGNESIUM OXIDE. [Concomitant]
     Active Substance: MAGNESIUM OXIDE
     Indication: CONSTIPATION
     Dosage: 400 MG, 3 IN 1 D
     Route: 048
     Dates: start: 20170927
  19. FUROSEMIDE. [Concomitant]
     Active Substance: FUROSEMIDE
     Indication: CHRONIC KIDNEY DISEASE
     Dosage: 40 MG, 1 IN 1 D
     Route: 048
     Dates: start: 20170906
  20. LUNESTA [Concomitant]
     Active Substance: ESZOPICLONE
     Indication: INSOMNIA
     Dosage: 2 MG, 1 IN 1 D
     Route: 048
     Dates: start: 20170906
  21. FILGRASTIM BS [Concomitant]
     Active Substance: FILGRASTIM
     Indication: FEBRILE NEUTROPENIA
     Dosage: 300 MCG, 1 IN 1 D
     Dates: start: 20171029
  22. ACOALAN [Concomitant]
     Indication: PLATELET COUNT DECREASED
     Dosage: 1200 MG, 1 IN 1 D
     Route: 041
     Dates: start: 20171110
  23. AZUNOL /00317302/ [Concomitant]
     Indication: DERMATITIS
     Dosage: 60 GM, 2 IN 1 D
     Route: 003
     Dates: start: 20171123
  24. BLINDED THERAPY [Suspect]
     Active Substance: INVESTIGATIONAL PRODUCT
     Dosage: 400 MG, 1 IN 1 D
     Route: 048
     Dates: start: 20171014, end: 20171014
  25. OTSUKA NORMAL SALINE [Concomitant]
     Dosage: 50 MG, 1 IN 1 D
     Route: 041
     Dates: start: 20171116
  26. PASTARON [Concomitant]
     Active Substance: UREA
     Indication: XEROSIS
     Dosage: 40 GM, 2 IN 1 D
     Route: 003
     Dates: start: 20171105
  27. BLINDED THERAPY [Suspect]
     Active Substance: INVESTIGATIONAL PRODUCT
     Indication: ACUTE MYELOID LEUKAEMIA
     Dosage: 100 MG, 1 IN 1 D
     Route: 048
     Dates: start: 20171012, end: 20171012
  28. BLINDED THERAPY [Suspect]
     Active Substance: INVESTIGATIONAL PRODUCT
     Dosage: 300 MG, 1 IN 1 D
     Route: 048
     Dates: start: 20171118, end: 20171121
  29. CALONAL [Concomitant]
     Active Substance: ACETAMINOPHEN
     Indication: PYREXIA
     Dosage: 400 MG, AS REQUIRED
     Route: 048
     Dates: start: 20171029
  30. TAKECAB [Concomitant]
     Active Substance: VONOPRAZAN FUMURATE
     Indication: PROPHYLAXIS
     Dosage: 20 MG, 1 IN 1 D
     Route: 048
     Dates: start: 20171013
  31. SODIUM CHLORIDE. [Concomitant]
     Active Substance: SODIUM CHLORIDE
     Indication: HYPONATRAEMIA
     Dosage: 20 ML, 1 IN 1 D
     Route: 041
     Dates: start: 20171014
  32. OTSUKA NORMAL SALINE [Concomitant]
     Dosage: 100 MG, 1 IN 1 D
     Route: 041
     Dates: start: 20171029

REACTIONS (2)
  - Cardiac failure congestive [Not Recovered/Not Resolved]
  - Pneumonia [Not Recovered/Not Resolved]

NARRATIVE: CASE EVENT DATE: 20171121
